FAERS Safety Report 4805778-0 (Version None)
Quarter: 2005Q4

REPORT INFORMATION
  Report Type: 
  Country: None (occurrence: None)
  Receive Date: 20051018
  Receipt Date: 20051018
  Transmission Date: 20060501
  Serious: Yes (Hospitalization)
  Sender: FDA-Public Use
  Company Number: None

PATIENT
  Sex: Male

DRUGS (12)
  1. VANCOMYCIN [Suspect]
     Indication: ARTHRITIS BACTERIAL
     Dosage: 1.5  GRAMS   EVERY 12 HOURS  IV
     Route: 042
     Dates: start: 20050825, end: 20050901
  2. VANCOMYCIN [Suspect]
     Indication: STAPHYLOCOCCAL INFECTION
     Dosage: 1.5  GRAMS   EVERY 12 HOURS  IV
     Route: 042
     Dates: start: 20050825, end: 20050901
  3. VANCOMYCIN [Suspect]
     Dates: start: 20050901, end: 20050906
  4. IBUPROFEN [Concomitant]
  5. HYDROMORPHINE [Concomitant]
  6. DILAUDID [Concomitant]
  7. OXYCODONE [Concomitant]
  8. DIPHENHYDRAMINE HCL [Concomitant]
  9. ACETAMINOPHEN [Concomitant]
  10. DIAZEPAM [Concomitant]
  11. KETOROLAC TROMETHAMINE [Concomitant]
  12. SENNA/DOCUSATE [Concomitant]

REACTIONS (9)
  - ALANINE AMINOTRANSFERASE INCREASED [None]
  - ASPARTATE AMINOTRANSFERASE INCREASED [None]
  - BLOOD ALKALINE PHOSPHATASE INCREASED [None]
  - BLOOD BILIRUBIN INCREASED [None]
  - BLOOD LACTATE DEHYDROGENASE INCREASED [None]
  - GAMMA-GLUTAMYLTRANSFERASE INCREASED [None]
  - LEUKOPENIA [None]
  - PYREXIA [None]
  - ULTRASOUND ABDOMEN ABNORMAL [None]
